FAERS Safety Report 8540666 (Version 8)
Quarter: 2013Q1

REPORT INFORMATION
  Report Type: Report from Study
  Country: JP (occurrence: JP)
  Receive Date: 20120502
  Receipt Date: 20130314
  Transmission Date: 20140127
  Serious: Yes (Death, Life-Threatening)
  Sender: FDA-Public Use
  Company Number: JP-PFIZER INC-2012104100

PATIENT
  Age: 64 Year
  Sex: Male
  Weight: 75.2 kg

DRUGS (24)
  1. XALKORI [Suspect]
     Indication: NON-SMALL CELL LUNG CANCER
     Dosage: 250 MG, 2X/DAY
     Route: 048
     Dates: start: 20120408, end: 20120422
  2. XALKORI [Suspect]
     Dosage: 250 MG, 1X/DAY
     Route: 048
     Dates: start: 20120423, end: 20120424
  3. XALKORI [Suspect]
     Dosage: 250 MG, 2X/DAY
     Route: 048
     Dates: start: 20120425, end: 20120507
  4. BAKTAR [Concomitant]
     Indication: INFECTION PROPHYLAXIS
     Dosage: 1 G, 2X/DAY
     Route: 048
     Dates: start: 20120405, end: 20120407
  5. DENOSINE [Concomitant]
     Indication: INFECTION PROPHYLAXIS
     Dosage: 350 MG, 1X/DAY
     Route: 041
     Dates: start: 20120405, end: 20120412
  6. ALBUMIN [Concomitant]
     Indication: MALNUTRITION
     Dosage: 50 ML, 1X/DAY
     Route: 041
     Dates: start: 20120408, end: 20120409
  7. ALBUMIN [Concomitant]
     Indication: BLOOD ALBUMIN DECREASED
  8. ELNEOPA NO.2 [Concomitant]
     Indication: NUTRITIONAL SUPPLEMENTATION
     Dosage: 1000 ML, 1X/DAY
     Route: 041
     Dates: start: 20120409, end: 20120409
  9. MEROPEN [Concomitant]
     Indication: INFECTION PROPHYLAXIS
     Dosage: 1 G, 3X/DAY
     Route: 041
     Dates: start: 20120405, end: 20120421
  10. FENTANYL [Concomitant]
     Indication: ANALGESIC THERAPY
     Dosage: 4 ML PER HOUR
     Route: 041
     Dates: start: 20120403, end: 20120502
  11. DORMICUM [Concomitant]
     Indication: SEDATION
     Dosage: 3 ML PER HOUR
     Route: 041
     Dates: start: 20120403, end: 20120413
  12. GASTER D [Concomitant]
     Indication: PROPHYLAXIS AGAINST GASTROINTESTINAL ULCER
     Dosage: 20 MG, 2X/DAY
     Route: 048
     Dates: start: 20120413
  13. RISPERDAL [Concomitant]
     Indication: SEDATION
     Dosage: 1 DF, 1X/DAY
     Route: 048
     Dates: start: 20120419
  14. PRECEDEX [Concomitant]
     Indication: SEDATION
     Dosage: 2 ML PER HOUR
     Route: 041
     Dates: start: 20120414, end: 20120418
  15. ELNEOPA NO.1 [Concomitant]
     Indication: NUTRITIONAL SUPPLEMENTATION
     Dosage: 1000 ML, UNK
     Route: 042
     Dates: start: 20120406
  16. GASTER [Concomitant]
     Dosage: 20 MG, 1X/DAY
     Route: 042
     Dates: start: 20120403
  17. ADONA [Concomitant]
     Dosage: 50 MG, AS NEEDED
     Route: 042
     Dates: start: 20120415, end: 20120415
  18. DIPRIVAN [Concomitant]
     Dosage: 3 ML PER HOUR
     Route: 042
     Dates: start: 20120415, end: 20120417
  19. ROPION [Concomitant]
     Dosage: 50 MG, AS NEEDED
     Route: 042
     Dates: start: 20120422, end: 20120423
  20. HERBAL EXTRACTS NOS [Concomitant]
     Dosage: 7.5 G, 3X/DAY
     Route: 048
     Dates: start: 20120413, end: 20120425
  21. ENTERONON R [Concomitant]
     Dosage: 3 G, 3X/DAY
     Route: 048
     Dates: start: 20120413, end: 20120424
  22. RESLIN [Concomitant]
     Dosage: 25 MG, 1X/DAY
     Route: 048
     Dates: start: 20120420
  23. FENTOS [Concomitant]
     Dosage: 1 MG, 1X/DAY
     Route: 061
     Dates: start: 20120421, end: 20120429
  24. SODIUM CHLORIDE [Concomitant]
     Dosage: 3 G, 3X/DAY
     Route: 048
     Dates: start: 20120415, end: 20120422

REACTIONS (3)
  - Haemoptysis [Recovering/Resolving]
  - Disease progression [Fatal]
  - Non-small cell lung cancer [Fatal]
